FAERS Safety Report 6570485-3 (Version None)
Quarter: 2010Q1

REPORT INFORMATION
  Report Type: 
  Country: None (occurrence: None)
  Receive Date: 20100204
  Receipt Date: 20100111
  Transmission Date: 20100710
  Serious: No
  Sender: FDA-Public Use
  Company Number: A0807683A

PATIENT
  Age: 48 Year
  Sex: Female

DRUGS (7)
  1. ARIXTRA [Suspect]
     Indication: DRUG USE FOR UNKNOWN INDICATION
     Dosage: 2.5MG PER DAY
     Route: 058
     Dates: start: 20090905
  2. METHADONE [Concomitant]
  3. DARVOCET [Concomitant]
  4. BYSTOLIC [Concomitant]
  5. DILAUDID [Concomitant]
  6. PERCOCET [Concomitant]
  7. FERROUS SULFATE TAB [Concomitant]

REACTIONS (3)
  - BLOOD BLISTER [None]
  - PRODUCT QUALITY ISSUE [None]
  - SKIN LACERATION [None]
